FAERS Safety Report 8467022-5 (Version None)
Quarter: 2012Q2

REPORT INFORMATION
  Report Type: 
  Country: None (occurrence: None)
  Receive Date: 20120619
  Receipt Date: 20120611
  Transmission Date: 20120825
  Serious: No
  Sender: FDA-Public Use
  Company Number: 120244

PATIENT
  Age: 78 Year
  Sex: Male
  Weight: 79.3795 kg

DRUGS (10)
  1. IRON [Concomitant]
  2. SUPREP BOWEL PREP KIT [Suspect]
     Indication: COLONOSCOPY
     Dosage: 2 X 6OZ BOTTLE/1X/PO
     Route: 048
     Dates: start: 20120418
  3. HYDROCHLOROTHIAZIDE [Concomitant]
  4. MULTI-VITAMIN [Concomitant]
  5. ZANTAC [Concomitant]
  6. BENAZEPRIL [Concomitant]
  7. AMLODIPINE [Concomitant]
  8. CARVEDILOL [Concomitant]
  9. ATORVASTATIN [Concomitant]
  10. RAPAFLO [Concomitant]

REACTIONS (8)
  - ABDOMINAL PAIN [None]
  - ANURIA [None]
  - BLISTER [None]
  - BLADDER DISORDER [None]
  - BURNING SENSATION [None]
  - HAEMOGLOBIN DECREASED [None]
  - URINARY INCONTINENCE [None]
  - HAEMATURIA [None]
